FAERS Safety Report 6257217-3 (Version None)
Quarter: 2009Q3

REPORT INFORMATION
  Report Type: 
  Country: None (occurrence: None)
  Receive Date: 20090706
  Receipt Date: 20090624
  Transmission Date: 20100115
  Serious: Yes (Other)
  Sender: FDA-Public Use
  Company Number: SE-GENENTECH-285844

PATIENT
  Sex: Female

DRUGS (2)
  1. HERCEPTIN [Suspect]
     Indication: DRUG USE FOR UNKNOWN INDICATION
     Dosage: 560 MG, X1
     Route: 042
     Dates: start: 20090225
  2. HERCEPTIN [Suspect]
     Dosage: 420 MG, Q3W
     Route: 042

REACTIONS (2)
  - THYROTOXIC CRISIS [None]
  - WEIGHT DECREASED [None]
